FAERS Safety Report 8502816-9 (Version None)
Quarter: 2012Q3

REPORT INFORMATION
  Report Type: 
  Country: None (occurrence: None)
  Receive Date: 20120711
  Receipt Date: 20120709
  Transmission Date: 20120928
  Serious: Yes (Other)
  Sender: FDA-Public Use
  Company Number: US-PFIZER INC-2012164459

PATIENT
  Sex: Female

DRUGS (1)
  1. CELECOXIB [Suspect]
     Indication: BACK DISORDER
     Dosage: UNK

REACTIONS (3)
  - PERITONITIS [None]
  - FEELING ABNORMAL [None]
  - APPENDICITIS PERFORATED [None]
